FAERS Safety Report 14365491 (Version 8)
Quarter: 2018Q4

REPORT INFORMATION
  Report Type: Report from Study
  Country: JP (occurrence: JP)
  Receive Date: 20180108
  Receipt Date: 20181126
  Transmission Date: 20190204
  Serious: Yes (Hospitalization, Other)
  Sender: FDA-Public Use
  Company Number: JP-ALXN-A201714674AA

PATIENT
  Age: 4 Year
  Sex: Female

DRUGS (29)
  1. TACROLIMUS. [Concomitant]
     Active Substance: TACROLIMUS
     Indication: RENAL TRANSPLANT
     Dosage: UNK
     Route: 065
  2. METHYLPREDNISOLONE. [Concomitant]
     Active Substance: METHYLPREDNISOLONE
     Indication: PROPHYLAXIS
     Dosage: 6 MG, BEFORE SOLIRIS ADMINISTRATION
     Route: 041
     Dates: start: 20130906
  3. PROGRAF [Concomitant]
     Active Substance: TACROLIMUS\TACROLIMUS ANHYDROUS
     Dosage: 4.0 MG, BID
     Route: 048
     Dates: start: 20170828, end: 20170924
  4. CEFTRIAXONE. [Suspect]
     Active Substance: CEFTRIAXONE
     Indication: UPPER RESPIRATORY TRACT INFLAMMATION
     Dosage: 750 MG, BID
     Route: 041
     Dates: start: 20180416, end: 20180419
  5. CEFTRIAXONE. [Suspect]
     Active Substance: CEFTRIAXONE
     Indication: PYREXIA
     Dosage: 1 G, DAILY
     Route: 065
     Dates: start: 20180510, end: 201805
  6. MEDROL [Concomitant]
     Active Substance: METHYLPREDNISOLONE
     Indication: RENAL TRANSPLANT
     Dosage: 4 MG, QOD
     Route: 048
     Dates: start: 20170605
  7. LAC-B [Concomitant]
     Active Substance: BIFIDOBACTERIUM SPP.
     Indication: ATYPICAL HAEMOLYTIC URAEMIC SYNDROME
     Dosage: 0.66 G, TID
     Route: 048
     Dates: start: 20170608, end: 20180121
  8. CELLCEPT [Concomitant]
     Active Substance: MYCOPHENOLATE MOFETIL\MYCOPHENOLATE MOFETIL HYDROCHLORIDE
     Indication: ATYPICAL HAEMOLYTIC URAEMIC SYNDROME
     Dosage: MORNING 500 MG, NIGHT 250 MG
     Route: 048
     Dates: start: 20180122
  9. SODIUM VALPROATE [Concomitant]
     Active Substance: VALPROATE SODIUM
     Dosage: 50 MG, BID
     Route: 048
     Dates: start: 20170925
  10. PROGRAF [Concomitant]
     Active Substance: TACROLIMUS\TACROLIMUS ANHYDROUS
     Dosage: 3.6 MG, BID
     Route: 048
     Dates: start: 20180122, end: 20180218
  11. SOLIRIS [Suspect]
     Active Substance: ECULIZUMAB
     Dosage: 300 MG, QW
     Route: 042
     Dates: start: 20130906
  12. CEFTRIAXONE. [Suspect]
     Active Substance: CEFTRIAXONE
     Indication: GASTROENTERITIS NOROVIRUS
     Dosage: 1 G, DAILY
     Route: 041
     Dates: start: 20171130
  13. MEDROL [Concomitant]
     Active Substance: METHYLPREDNISOLONE
     Indication: ATYPICAL HAEMOLYTIC URAEMIC SYNDROME
  14. SODIUM VALPROATE [Concomitant]
     Active Substance: VALPROATE SODIUM
     Indication: EPILEPSY
     Dosage: 33.3 MG, TID
     Route: 048
     Dates: start: 20151217, end: 20170924
  15. PROGRAF [Concomitant]
     Active Substance: TACROLIMUS\TACROLIMUS ANHYDROUS
     Indication: ATYPICAL HAEMOLYTIC URAEMIC SYNDROME
     Dosage: 4.4 MG, BID
     Route: 048
     Dates: start: 20170703, end: 20170827
  16. PROGRAF [Concomitant]
     Active Substance: TACROLIMUS\TACROLIMUS ANHYDROUS
     Dosage: 3.8 MG, BID
     Route: 048
     Dates: start: 20170925, end: 20171022
  17. PROGRAF [Concomitant]
     Active Substance: TACROLIMUS\TACROLIMUS ANHYDROUS
     Dosage: 2.0 MG, BID
     Route: 048
     Dates: start: 20180320, end: 20180729
  18. PROGRAF [Concomitant]
     Active Substance: TACROLIMUS\TACROLIMUS ANHYDROUS
     Dosage: 2.2 MG, BID
     Route: 048
     Dates: start: 20180730
  19. SOLIRIS [Suspect]
     Active Substance: ECULIZUMAB
     Indication: ATYPICAL HAEMOLYTIC URAEMIC SYNDROME
     Dosage: 150 MG, SINGLE
     Route: 042
     Dates: start: 20130830, end: 20130830
  20. CEFTRIAXONE. [Suspect]
     Active Substance: CEFTRIAXONE
     Indication: FAECES SOFT
  21. PROGRAF [Concomitant]
     Active Substance: TACROLIMUS\TACROLIMUS ANHYDROUS
     Dosage: 3.6 MG, BID
     Route: 048
     Dates: start: 20171023, end: 20171119
  22. LAC-B [Concomitant]
     Active Substance: BIFIDOBACTERIUM SPP.
     Dosage: 1 G, BID
     Route: 048
     Dates: start: 20180122, end: 20180610
  23. LAC-B [Concomitant]
     Active Substance: BIFIDOBACTERIUM SPP.
     Dosage: 2 G, BID
     Route: 048
     Dates: start: 20180611
  24. PROGRAF [Concomitant]
     Active Substance: TACROLIMUS\TACROLIMUS ANHYDROUS
     Dosage: 3.2 MG, BID
     Route: 048
     Dates: start: 20171120, end: 20171217
  25. PROGRAF [Concomitant]
     Active Substance: TACROLIMUS\TACROLIMUS ANHYDROUS
     Dosage: 3.0-2.0 MG, BID
     Route: 048
     Dates: start: 20171218, end: 20180121
  26. PROGRAF [Concomitant]
     Active Substance: TACROLIMUS\TACROLIMUS ANHYDROUS
     Dosage: 3.0-2.0 MG, BID
     Route: 048
     Dates: start: 20180219, end: 20180319
  27. CEFTRIAXONE. [Suspect]
     Active Substance: CEFTRIAXONE
     Indication: PYREXIA
     Dosage: 750 MG, BID
     Route: 041
     Dates: start: 20180426, end: 20180429
  28. CEFTRIAXONE. [Suspect]
     Active Substance: CEFTRIAXONE
     Indication: ABDOMINAL PAIN
  29. CELLCEPT [Concomitant]
     Active Substance: MYCOPHENOLATE MOFETIL\MYCOPHENOLATE MOFETIL HYDROCHLORIDE
     Indication: RENAL TRANSPLANT
     Dosage: 250 MG, BID
     Route: 048
     Dates: start: 20170311, end: 20180121

REACTIONS (9)
  - Gastroenteritis norovirus [Recovered/Resolved]
  - Cholelithiasis [Recovering/Resolving]
  - Pyrexia [Recovered/Resolved]
  - Pyrexia [Recovering/Resolving]
  - Inappropriate schedule of product administration [Unknown]
  - Pneumonia pneumococcal [Recovered/Resolved]
  - Faeces soft [Recovered/Resolved]
  - Upper respiratory tract inflammation [Recovering/Resolving]
  - Abdominal pain [Recovered/Resolved]

NARRATIVE: CASE EVENT DATE: 20171130
